FAERS Safety Report 13415210 (Version 4)
Quarter: 2017Q3

REPORT INFORMATION
  Report Type: Report from Study
  Country: NL (occurrence: NL)
  Receive Date: 20170406
  Receipt Date: 20170823
  Transmission Date: 20171127
  Serious: Yes (Hospitalization, Other)
  Sender: FDA-Public Use
  Company Number: NL-AMGEN-NLDSL2017049748

PATIENT
  Age: 84 Year
  Sex: Male

DRUGS (2)
  1. XGEVA [Suspect]
     Active Substance: DENOSUMAB
     Dosage: UNK
     Route: 058
  2. XGEVA [Suspect]
     Active Substance: DENOSUMAB
     Indication: PROPHYLAXIS
     Dosage: 120 MG (1.70 ML), Q4WK
     Route: 058

REACTIONS (8)
  - Pneumonia [Unknown]
  - Neoplasm progression [Not Recovered/Not Resolved]
  - Erysipelas [Recovering/Resolving]
  - Fall [Unknown]
  - Pain [Recovered/Resolved]
  - Haematoma [Recovered/Resolved]
  - Cystitis [Recovered/Resolved]
  - Pyelitis [Recovering/Resolving]

NARRATIVE: CASE EVENT DATE: 20170309
